FAERS Safety Report 17413347 (Version 1)
Quarter: 2020Q1

REPORT INFORMATION
  Report Type: Report from Study
  Country: AR (occurrence: AR)
  Receive Date: 20200213
  Receipt Date: 20200213
  Transmission Date: 20200409
  Serious: Yes (Hospitalization)
  Sender: FDA-Public Use
  Company Number: NVSC2020AR035568

PATIENT
  Sex: Female

DRUGS (2)
  1. MEKINIST [Suspect]
     Active Substance: TRAMETINIB DIMETHYL SULFOXIDE
     Indication: METASTATIC MALIGNANT MELANOMA
     Dosage: 2 MG, QD (1 X 2 MG, SINCE 5 MONTHS AGO AND ESTIMATED DATE OF 3 MONTHS)
     Route: 065
  2. TAFINLAR [Suspect]
     Active Substance: DABRAFENIB MESYLATE
     Indication: METASTATIC MALIGNANT MELANOMA
     Dosage: 300 MG, QD (4 X 75 MG, (SINCE 5 MONTHS AGO AND ESTIMATED DATE OF 3 MONTHS))
     Route: 065

REACTIONS (6)
  - Metastases to central nervous system [Not Recovered/Not Resolved]
  - Movement disorder [Not Recovered/Not Resolved]
  - Ill-defined disorder [Not Recovered/Not Resolved]
  - Brain neoplasm [Not Recovered/Not Resolved]
  - Sensory loss [Not Recovered/Not Resolved]
  - Blindness [Recovering/Resolving]
